FAERS Safety Report 8622032-X (Version None)
Quarter: 2012Q3

REPORT INFORMATION
  Report Type: 
  Country: None (occurrence: None)
  Receive Date: 20120823
  Receipt Date: 20120823
  Transmission Date: 20120928
  Serious: Yes (Life-Threatening)
  Sender: FDA-Public Use
  Company Number: None

PATIENT
  Age: 52 Year
  Sex: Male
  Weight: 86.3 kg

DRUGS (1)
  1. PROTAMINE SULFATE [Suspect]
     Dosage: 90MG ONCE IV BOLUS
     Route: 040
     Dates: start: 20120622, end: 20120622

REACTIONS (2)
  - BRADYCARDIA [None]
  - HYPOTENSION [None]
